FAERS Safety Report 17196169 (Version 1)
Quarter: 2019Q4

REPORT INFORMATION
  Report Type: Spontaneous
  Country: US (occurrence: US)
  Receive Date: 20191202
  Receipt Date: 20191202
  Transmission Date: 20200122
  Serious: Yes (Other)
  Sender: FDA-Public Use
  Company Number: None

PATIENT
  Age: 59 Year
  Sex: Female
  Weight: 88.9 kg

DRUGS (7)
  1. CARVEDILOL. [Concomitant]
     Active Substance: CARVEDILOL
  2. NIFEDIPINE. [Concomitant]
     Active Substance: NIFEDIPINE
  3. DICLOFENAC [Concomitant]
     Active Substance: DICLOFENAC
  4. SIMVASTATIN. [Concomitant]
     Active Substance: SIMVASTATIN
  5. RANITIDINE CAPS 150MG GENERIC FOR ZANTAC GELDOSE CAPS [Suspect]
     Active Substance: RANITIDINE
     Indication: GASTROOESOPHAGEAL REFLUX DISEASE
     Dosage: ?          OTHER FREQUENCY:MORNING/NIGHT;?
     Route: 048
     Dates: start: 2016, end: 20191106
  6. TELMISARTAN. [Concomitant]
     Active Substance: TELMISARTAN
  7. VITAMIN B12 [Suspect]
     Active Substance: CYANOCOBALAMIN

REACTIONS (1)
  - Mood altered [None]

NARRATIVE: CASE EVENT DATE: 2017
